FAERS Safety Report 4886782-3 (Version None)
Quarter: 2006Q1

REPORT INFORMATION
  Report Type: 
  Country: None (occurrence: None)
  Receive Date: 20060119
  Receipt Date: 20060119
  Transmission Date: 20060701
  Serious: Yes (Hospitalization, Other)
  Sender: FDA-Public Use
  Company Number: None

PATIENT
  Age: 34 Year
  Sex: Male
  Weight: 65.7716 kg

DRUGS (1)
  1. NYQUIL MULTISYMPTOM   15 ML - 500MG ACETAMINOPHEN   6.25 MG DOXYLAMINE [Suspect]
     Indication: INFLUENZA
     Dosage: 30 ML  -RECOMMENDED-  ONCE  PO
     Route: 048
     Dates: start: 20060117, end: 20060117

REACTIONS (7)
  - COORDINATION ABNORMAL [None]
  - DELIRIUM [None]
  - DISSOCIATION [None]
  - DYSARTHRIA [None]
  - HYPERHIDROSIS [None]
  - LOSS OF CONSCIOUSNESS [None]
  - RESPIRATORY RATE INCREASED [None]
